FAERS Safety Report 9382386 (Version 1)
Quarter: 2013Q3

REPORT INFORMATION
  Report Type: Spontaneous
  Country: US (occurrence: US)
  Receive Date: 20130703
  Receipt Date: 20130703
  Transmission Date: 20140515
  Serious: Yes (Death)
  Sender: FDA-Public Use
  Company Number: PHEH2013US014111

PATIENT
  Age: 35 Year
  Sex: Male
  Weight: 77 kg

DRUGS (5)
  1. EXJADE [Suspect]
     Indication: HAEMOCHROMATOSIS
     Dosage: 1500 MG DAILY
     Route: 048
  2. KEPPRA [Concomitant]
     Dosage: 1200 MG, UNK
  3. RAMIPRIL [Concomitant]
     Dosage: 5 MG, UNK
  4. FOLIC ACID [Concomitant]
     Dosage: UNK UKN, UNK
  5. ARANESP [Concomitant]
     Dosage: UNK UKN, UNK

REACTIONS (2)
  - Respiratory arrest [Fatal]
  - Convulsion [Fatal]
